FAERS Safety Report 5509346-7 (Version None)
Quarter: 2007Q4

REPORT INFORMATION
  Report Type: 
  Country: None (occurrence: None)
  Receive Date: 20071107
  Receipt Date: 20071026
  Transmission Date: 20080405
  Serious: Yes (Other)
  Sender: FDA-Public Use
  Company Number: FR-PFIZER INC-2007091187

PATIENT
  Age: 20 Year
  Sex: Female

DRUGS (1)
  1. CHAMPIX [Suspect]

REACTIONS (4)
  - DEPRESSION [None]
  - FEELING ABNORMAL [None]
  - PANIC REACTION [None]
  - SLEEP DISORDER [None]
